FAERS Safety Report 6332106-4 (Version None)
Quarter: 2009Q3

REPORT INFORMATION
  Report Type: 
  Country: None (occurrence: None)
  Receive Date: 20090828
  Receipt Date: 20090818
  Transmission Date: 20100115
  Serious: Yes (Other)
  Sender: FDA-Public Use
  Company Number: US-BAYER-200926109NA

PATIENT
  Age: 41 Year
  Sex: Female

DRUGS (3)
  1. BETASERON [Suspect]
     Indication: RELAPSING-REMITTING MULTIPLE SCLEROSIS
     Dosage: TOTAL DAILY DOSE: 2 MIU
     Route: 058
     Dates: start: 20090706
  2. BETASERON [Suspect]
     Dosage: TOTAL DAILY DOSE: 8 MIU
     Route: 058
  3. IBUPROFEN [Concomitant]

REACTIONS (8)
  - ASTHENIA [None]
  - DYSSTASIA [None]
  - FATIGUE [None]
  - HAEMATEMESIS [None]
  - PAIN [None]
  - PARAESTHESIA [None]
  - PERIPHERAL COLDNESS [None]
  - SENSORY LOSS [None]
